FAERS Safety Report 4267263-7 (Version None)
Quarter: 2004Q1

REPORT INFORMATION
  Report Type: 
  Country: None (occurrence: None)
  Receive Date: 20040107
  Receipt Date: 20031230
  Transmission Date: 20041129
  Serious: No
  Sender: FDA-Public Use
  Company Number: 03P-056-0240347-00

PATIENT
  Age: 50 Year
  Sex: Female

DRUGS (9)
  1. DEPAKENE [Suspect]
     Indication: EPILEPSY
     Dosage: SEE IMAGE
     Route: 048
     Dates: start: 20031001
  2. DEPAKENE [Suspect]
     Indication: EPILEPSY
     Dosage: SEE IMAGE
     Route: 048
     Dates: start: 20031015
  3. VALPROATE SODIUM [Suspect]
     Indication: EPILEPSY
     Dates: end: 20030901
  4. MEPRONIZINE [Concomitant]
  5. HEPTAMINOL [Concomitant]
  6. FLUOXETINE HYDROCHLORIDE [Concomitant]
  7. CLONAZEPAM [Concomitant]
  8. PRAZEPAM [Concomitant]
  9. ACETAMINOPHEN [Concomitant]

REACTIONS (4)
  - ACCIDENTAL OVERDOSE [None]
  - ANTICONVULSANT DRUG LEVEL BELOW THERAPEUTIC [None]
  - DIARRHOEA [None]
  - MELAENA [None]
